FAERS Safety Report 19093255 (Version 1)
Quarter: 2021Q2

REPORT INFORMATION
  Report Type: Report from Study
  Country: US (occurrence: US)
  Receive Date: 20210405
  Receipt Date: 20210405
  Transmission Date: 20210717
  Serious: Yes (Hospitalization)
  Sender: FDA-Public Use
  Company Number: US-JNJFOC-20200608233

PATIENT
  Age: 66 Year
  Sex: Male

DRUGS (7)
  1. APALUTAMIDE [Suspect]
     Active Substance: APALUTAMIDE
     Indication: PROSTATE CANCER
     Dosage: LAST DOSE PRIOR TO EVENT 06?MAR?2020
     Route: 048
     Dates: start: 20200211, end: 20200306
  2. LEUPROLIDE                         /00726901/ [Suspect]
     Active Substance: LEUPROLIDE
     Indication: PROSTATE CANCER
     Dosage: MOST RECENT DOSE PRIOR TO EVENT 11/FEB/2020
     Route: 030
     Dates: start: 20200211
  3. NORVASC [Concomitant]
     Active Substance: AMLODIPINE BESYLATE
     Indication: HYPERTENSION
     Route: 048
     Dates: start: 20200305, end: 20200308
  4. PREDNISONE. [Suspect]
     Active Substance: PREDNISONE
     Indication: PROSTATE CANCER
     Dosage: LAST DOSE PRIOR TO EVENT 06?MAR?2020
     Route: 048
     Dates: start: 20200211, end: 20200306
  5. NORVASC [Concomitant]
     Active Substance: AMLODIPINE BESYLATE
     Route: 048
     Dates: start: 20200309
  6. ABIRATERONE ACETATE. [Suspect]
     Active Substance: ABIRATERONE ACETATE
     Indication: PROSTATE CANCER
     Dosage: LAST DOSE PRIOR TO EVENT 06?MAR?2020
     Route: 048
     Dates: start: 20200211, end: 20200306
  7. ALBUTEROL SULFATE. [Concomitant]
     Active Substance: ALBUTEROL SULFATE
     Indication: ASTHMA
     Dosage: 2 PUFFS Q 6 HOURS PRN
     Route: 048
     Dates: start: 20200305

REACTIONS (1)
  - Hypertensive crisis [Recovered/Resolved]

NARRATIVE: CASE EVENT DATE: 20200306
